FAERS Safety Report 5480692-9 (Version None)
Quarter: 2007Q4

REPORT INFORMATION
  Report Type: 
  Country: None (occurrence: None)
  Receive Date: 20071009
  Receipt Date: 20070926
  Transmission Date: 20080405
  Serious: Yes (Hospitalization, Other)
  Sender: FDA-Public Use
  Company Number: CA-GENENTECH-248447

PATIENT
  Sex: Male
  Weight: 88 kg

DRUGS (1)
  1. OMALIZUMAB [Suspect]
     Indication: ASTHMA
     Dosage: 300 MG, UNK
     Route: 058
     Dates: start: 20070831

REACTIONS (3)
  - BACK PAIN [None]
  - OEDEMA PERIPHERAL [None]
  - RESPIRATORY DISTRESS [None]
